FAERS Safety Report 17527540 (Version 1)
Quarter: 2020Q1

REPORT INFORMATION
  Report Type: Spontaneous
  Country: US (occurrence: US)
  Receive Date: 20200302
  Receipt Date: 20200302
  Transmission Date: 20200409
  Serious: No
  Sender: FDA-Public Use
  Company Number: None

PATIENT
  Age: 74 Year

DRUGS (1)
  1. BUDESONIDE 3MG CAPSULES [Suspect]
     Active Substance: BUDESONIDE
     Indication: CROHN^S DISEASE
     Dosage: ?          QUANTITY:90 DF DOSAGE FORM;?
     Route: 048
     Dates: start: 20200301, end: 20200302

REACTIONS (2)
  - Dyspnoea [None]
  - Rash [None]

NARRATIVE: CASE EVENT DATE: 20200302
